FAERS Safety Report 5847009-9 (Version None)
Quarter: 2008Q3

REPORT INFORMATION
  Report Type: 
  Country: None (occurrence: None)
  Receive Date: 20080815
  Receipt Date: 20080805
  Transmission Date: 20090109
  Serious: Yes (Hospitalization)
  Sender: FDA-Public Use
  Company Number: FR-PFIZER INC-2008062985

PATIENT
  Sex: Male

DRUGS (4)
  1. VIAGRA [Suspect]
     Indication: ERECTILE DYSFUNCTION
     Dates: start: 20080703, end: 20080703
  2. ACETYLSALICYLATE LYSINE [Concomitant]
  3. FLECAINIDE ACETATE [Concomitant]
  4. ATORVASTATIN [Concomitant]

REACTIONS (2)
  - CEREBRAL HAEMATOMA [None]
  - HEMIPARESIS [None]
